FAERS Safety Report 7601270-9 (Version None)
Quarter: 2011Q3

REPORT INFORMATION
  Report Type: 
  Country: None (occurrence: None)
  Receive Date: 20110711
  Receipt Date: 20110704
  Transmission Date: 20111222
  Serious: Yes (Hospitalization)
  Sender: FDA-Public Use
  Company Number: PHHY2011JP60209

PATIENT
  Age: 58 Year
  Sex: Female

DRUGS (1)
  1. PACLITAXEL [Suspect]
     Indication: METASTASES TO BONE
     Dosage: 100 MG/M2, QW
     Dates: start: 20070801

REACTIONS (8)
  - SKIN HYPERTROPHY [None]
  - SCLERODERMA [None]
  - PIGMENTATION DISORDER [None]
  - CELL MARKER INCREASED [None]
  - OEDEMA PERIPHERAL [None]
  - SKIN FIBROSIS [None]
  - LYMPHOCYTIC INFILTRATION [None]
  - ANAEMIA [None]
